FAERS Safety Report 5381730-4 (Version None)
Quarter: 2007Q3

REPORT INFORMATION
  Report Type: 
  Country: None (occurrence: None)
  Receive Date: 20070709
  Receipt Date: 20070705
  Transmission Date: 20080115
  Serious: Yes (Life-Threatening, Hospitalization)
  Sender: FDA-Public Use
  Company Number: PHBS2007CH11303

PATIENT
  Age: 43 Year
  Sex: Female

DRUGS (14)
  1. LOPRESSOR [Suspect]
     Indication: ATRIAL FIBRILLATION
     Dosage: 15 MG, ONCE/SINGLE
     Dates: start: 20070429, end: 20070429
  2. FLUCLOXACILLINE [Concomitant]
     Dosage: 2 G, QID
     Route: 042
  3. ENDOXAPARINE [Concomitant]
     Dosage: 40 MG, QD
     Route: 058
  4. PARACETAMOL [Concomitant]
     Dosage: 1 G, QID
     Route: 048
  5. VITAMIN B COMPLEX CAP [Concomitant]
  6. RIFAMPICIN [Concomitant]
     Dosage: 600 MG, QD
     Route: 048
  7. BROMAZEPAM [Concomitant]
     Dosage: 1.5 MG, QD
     Route: 048
  8. POTASSIUM ACETATE [Concomitant]
     Dosage: 30 MMOL, BID
  9. MORPHINE [Concomitant]
     Dosage: 25 MG, QID
     Route: 048
  10. LACTILOL [Concomitant]
     Dosage: 15 ML, BID
  11. TORSEMIDE [Concomitant]
     Dosage: 5 MG, QID
     Route: 048
  12. ZOLPIDEM TARTRATE [Concomitant]
     Dosage: 10 MG, QID
     Route: 048
  13. SALICYLIC ACID [Concomitant]
     Dosage: 100 MG, QD
  14. ROBEXETINE [Concomitant]
     Dosage: 4 MG, BID

REACTIONS (7)
  - ATRIAL FLUTTER [None]
  - CARDIOGENIC SHOCK [None]
  - DRUG INEFFECTIVE [None]
  - GENERALISED OEDEMA [None]
  - LACTIC ACIDOSIS [None]
  - PULMONARY OEDEMA [None]
  - SINUS TACHYCARDIA [None]
